FAERS Safety Report 6460823-4 (Version None)
Quarter: 2009Q4

REPORT INFORMATION
  Report Type: 
  Country: None (occurrence: None)
  Receive Date: 20091130
  Receipt Date: 20091124
  Transmission Date: 20100525
  Serious: Yes (Death, Life-Threatening, Other)
  Sender: FDA-Public Use
  Company Number: CN-ASTRAZENECA-2009SE26424

PATIENT
  Age: 18 Year
  Sex: Female

DRUGS (15)
  1. SEROQUEL [Suspect]
     Indication: BIPOLAR DISORDER
     Route: 048
     Dates: start: 20090810, end: 20090810
  2. SEROQUEL [Suspect]
     Indication: RESTLESSNESS
     Route: 048
     Dates: start: 20090810, end: 20090810
  3. SEROQUEL [Suspect]
     Indication: IRRITABILITY
     Route: 048
     Dates: start: 20090810, end: 20090810
  4. SEROQUEL [Suspect]
     Route: 048
     Dates: start: 20090811, end: 20090812
  5. SEROQUEL [Suspect]
     Route: 048
     Dates: start: 20090811, end: 20090812
  6. SEROQUEL [Suspect]
     Route: 048
     Dates: start: 20090811, end: 20090812
  7. SEROQUEL [Suspect]
     Route: 048
     Dates: start: 20090813
  8. SEROQUEL [Suspect]
     Route: 048
     Dates: start: 20090813
  9. SEROQUEL [Suspect]
     Route: 048
     Dates: start: 20090813
  10. CARBAMAZEPINE [Concomitant]
     Indication: EPILEPSY
     Dosage: 0.1 BID
     Dates: start: 20090807, end: 20090810
  11. CARBAMAZEPINE [Concomitant]
     Dosage: 0.1 TID
     Dates: start: 20090811, end: 20090815
  12. OMEPRAZOLE [Concomitant]
     Dates: start: 20090809
  13. CLONAZEPAM [Concomitant]
     Dates: start: 20090811
  14. PERPHENAZINE [Concomitant]
  15. HALOPERIDOL [Concomitant]

REACTIONS (4)
  - COMA [None]
  - GRAND MAL CONVULSION [None]
  - HYPERAMMONAEMIA [None]
  - METABOLIC ENCEPHALOPATHY [None]
